FAERS Safety Report 9238064 (Version 1)
Quarter: 2013Q1

REPORT INFORMATION
  Report Type: Spontaneous
  Country: US (occurrence: None)
  Receive Date: 20121106
  Receipt Date: 20121106
  Transmission Date: 20140127
  Serious: No
  Sender: FDA-Public Use
  Company Number: 1000038106

PATIENT
  Age: 54 Year
  Sex: Male

DRUGS (8)
  1. DALIRESP [Suspect]
     Dosage: 500 MCG (500 MCG, 1 IN 1 D) ORAL
     Route: 048
  2. SPIRIVA (TIOTROPIUM BROMIDE) (TROPIUM BROMIDE) [Concomitant]
  3. DIOVAN (VALSARTAN)-(VALSARTAN) (VALSARTAN) [Concomitant]
  4. NEXIUM (ESOMEPRAZOLAM) [Concomitant]
  5. ADVAIR (SERETIDE) (SERETIDE) [Concomitant]
  6. LORATAB (LORATADINE) (LORATADINE) [Concomitant]
  7. PRO-AIR (PROCATEROL HYDROCHLORIDE) (PROCATEROL HYDROCHLORIDE) [Concomitant]
  8. XOPENEX (LEVOSALBUTAMOL HYDROCHLORIDE) (LEVSALBUTAMOL HYDROCHLORIDE) [Concomitant]

REACTIONS (5)
  - Decreased appetite [None]
  - Weight decreased [None]
  - Oxygen consumption increased [None]
  - Dyspnoea [None]
  - Influenza like illness [None]
